FAERS Safety Report 26140249 (Version 1)
Quarter: 2025Q4

REPORT INFORMATION
  Report Type: Report from Study
  Country: CA (occurrence: CA)
  Receive Date: 20251210
  Receipt Date: 20251210
  Transmission Date: 20260117
  Serious: Yes (Hospitalization, Other)
  Sender: MYLAN
  Company Number: CA-MYLANLABS-2025M1093545

PATIENT
  Sex: Male
  Weight: 89.25 kg

DRUGS (5)
  1. CLOZAPINE [Suspect]
     Active Substance: CLOZAPINE
     Indication: Product used for unknown indication
     Dosage: UNK
  2. CLOZARIL [Suspect]
     Active Substance: CLOZAPINE
     Indication: Schizoaffective disorder
     Dosage: 150 MILLIGRAM, QD
     Dates: start: 20251011, end: 20251027
  3. OLANZAPINE [Concomitant]
     Active Substance: OLANZAPINE
     Dosage: UNK
  4. EFFEXOR [Concomitant]
     Active Substance: VENLAFAXINE HYDROCHLORIDE
     Dosage: UNK
  5. QUETIAPINE [Concomitant]
     Active Substance: QUETIAPINE
     Dosage: UNK

REACTIONS (2)
  - Cerebrovascular accident [Recovered/Resolved]
  - Myocarditis [Recovered/Resolved]
